FAERS Safety Report 9193592 (Version 1)
Quarter: 2013Q1

REPORT INFORMATION
  Report Type: Spontaneous
  Country: US (occurrence: None)
  Receive Date: 20130325
  Receipt Date: 20130325
  Transmission Date: 20140127
  Serious: Yes (Other)
  Sender: FDA-Public Use
  Company Number: None

PATIENT
  Age: 51 Year
  Sex: Male
  Weight: 77.11 kg

DRUGS (1)
  1. CREST PRO-HEALTH [Suspect]

REACTIONS (4)
  - Chemical injury [None]
  - Thermal burn [None]
  - Tongue disorder [None]
  - Lip disorder [None]
